FAERS Safety Report 7674951-9 (Version None)
Quarter: 2011Q3

REPORT INFORMATION
  Report Type: 
  Country: None (occurrence: None)
  Receive Date: 20110810
  Receipt Date: 20110801
  Transmission Date: 20111222
  Serious: Yes (Other)
  Sender: FDA-Public Use
  Company Number: US-AMGEN-USASP2011039113

PATIENT
  Sex: Female

DRUGS (1)
  1. ENBREL [Suspect]
     Indication: RHEUMATOID ARTHRITIS
     Dosage: 50 MG, QWK
     Dates: start: 19980601, end: 20060101

REACTIONS (8)
  - AUTOIMMUNE DISORDER [None]
  - HAND DEFORMITY [None]
  - INJECTION SITE ERYTHEMA [None]
  - SPONDYLITIS [None]
  - INJECTION SITE PAIN [None]
  - PROTEIN S DEFICIENCY [None]
  - FOOT DEFORMITY [None]
  - DEEP VEIN THROMBOSIS [None]
